FAERS Safety Report 10022948 (Version 1)
Quarter: 2014Q1

REPORT INFORMATION
  Report Type: Spontaneous
  Country: US (occurrence: US)
  Receive Date: 20140319
  Receipt Date: 20140319
  Transmission Date: 20141002
  Serious: No
  Sender: FDA-Public Use
  Company Number: US-SA-2014SA019429

PATIENT
  Age: 83 Year
  Sex: Male

DRUGS (1)
  1. NASACORT ALLERGY [Suspect]
     Indication: NASAL CONGESTION
     Dosage: 2SPRAYQD2DAY1SPRAYQD
     Route: 045

REACTIONS (1)
  - Blood urine present [Not Recovered/Not Resolved]
